FAERS Safety Report 16615217 (Version 1)
Quarter: 2019Q3

REPORT INFORMATION
  Report Type: Spontaneous
  Country: US (occurrence: US)
  Receive Date: 20190723
  Receipt Date: 20190723
  Transmission Date: 20191004
  Serious: No
  Sender: FDA-Public Use
  Company Number: US-ALLERGAN-1831644US

PATIENT
  Sex: Male

DRUGS (2)
  1. TRELSTAR [Suspect]
     Active Substance: TRIPTORELIN PAMOATE
     Dosage: UNK
     Route: 065
     Dates: start: 20180619, end: 20180619
  2. TRELSTAR [Suspect]
     Active Substance: TRIPTORELIN PAMOATE
     Indication: PROSTATE CANCER
     Dosage: UNK, SINGLE
     Route: 065
     Dates: start: 201806, end: 201806

REACTIONS (2)
  - Wrong technique in product usage process [Unknown]
  - Syringe issue [Unknown]
